FAERS Safety Report 17299547 (Version 1)
Quarter: 2020Q1

REPORT INFORMATION
  Report Type: Spontaneous
  Country: US (occurrence: US)
  Receive Date: 20200121
  Receipt Date: 20200121
  Transmission Date: 20200409
  Serious: Yes (Hospitalization)
  Sender: FDA-Public Use
  Company Number: None

PATIENT
  Sex: Female

DRUGS (5)
  1. CELECOXIB. [Concomitant]
     Active Substance: CELECOXIB
  2. SERTRALINE [Concomitant]
     Active Substance: SERTRALINE HYDROCHLORIDE
  3. SULFASALAZINE. [Concomitant]
     Active Substance: SULFASALAZINE
  4. DOK PLUS [Concomitant]
     Active Substance: DOCUSATE SODIUM\SENNOSIDES
  5. HUMIRA [Suspect]
     Active Substance: ADALIMUMAB
     Indication: SPONDYLOARTHROPATHY
     Dosage: ?          OTHER FREQUENCY:EVERY 14 DAYS;?
     Route: 058
     Dates: start: 20180407

REACTIONS (1)
  - Therapy cessation [None]
